FAERS Safety Report 6029969-9 (Version None)
Quarter: 2009Q1

REPORT INFORMATION
  Report Type: 
  Country: None (occurrence: None)
  Receive Date: 20090107
  Receipt Date: 20081229
  Transmission Date: 20090719
  Serious: Yes (Other)
  Sender: FDA-Public Use
  Company Number: B0517411A

PATIENT
  Age: 61 Year
  Sex: Female

DRUGS (2)
  1. REQUIP [Suspect]
     Indication: PARKINSON'S DISEASE
     Dosage: .25MG THREE TIMES PER DAY
     Route: 048
     Dates: start: 20080213, end: 20080307
  2. CARBIDOPA + LEVODOPA [Concomitant]
     Indication: PARKINSON'S DISEASE
     Dosage: 150MG PER DAY
     Route: 048
     Dates: start: 20071031

REACTIONS (2)
  - SUDDEN ONSET OF SLEEP [None]
  - VISUAL IMPAIRMENT [None]
